FAERS Safety Report 5282448-9 (Version None)
Quarter: 2007Q1

REPORT INFORMATION
  Report Type: 
  Country: None (occurrence: None)
  Receive Date: 20070326
  Receipt Date: 20070313
  Transmission Date: 20070707
  Serious: Yes (Other)
  Sender: FDA-Public Use
  Company Number: B0462417A

PATIENT
  Age: 28 Year
  Sex: Male

DRUGS (2)
  1. LITHIUM CARBONATE [Suspect]
  2. NEUROLEPTIC (FORMULATION UNKNOWN) (NEUROLEPTIC) [Suspect]

REACTIONS (2)
  - NEUROLOGICAL SYMPTOM [None]
  - NEUROTOXICITY [None]
